FAERS Safety Report 21485832 (Version 1)
Quarter: 2022Q4

REPORT INFORMATION
  Report Type: Spontaneous
  Country: US (occurrence: None)
  Receive Date: 20221019
  Receipt Date: 20221019
  Transmission Date: 20230112
  Serious: Yes (Hospitalization)
  Sender: FDA-Public Use
  Company Number: None

PATIENT
  Age: 27 Year
  Sex: Female

DRUGS (7)
  1. GAMMAGARD LIQUID [Suspect]
     Active Substance: HUMAN IMMUNOGLOBULIN G
     Indication: Hypogammaglobulinaemia
     Dosage: OTHER QUANTITY : DOSE: 20GM/200ML;?FREQUENCY : MONTHLY;?INFUSE 20 GM (200 ML) INTRAVENOUSLY EVERY 6
     Route: 042
     Dates: start: 20220125
  2. AMLODIPINE [Concomitant]
     Active Substance: AMLODIPINE BESYLATE
  3. ESTRADIOL POW [Concomitant]
  4. GABAPENTIN [Concomitant]
     Active Substance: GABAPENTIN
  5. HEP LOCK SYR [Concomitant]
  6. SODIUM CHLORIDE [Concomitant]
     Active Substance: SODIUM CHLORIDE
  7. STRL FLSH SYR [Concomitant]

REACTIONS (2)
  - Sepsis [None]
  - Product dose omission issue [None]

NARRATIVE: CASE EVENT DATE: 20220823
